FAERS Safety Report 15232123 (Version 2)
Quarter: 2018Q4

REPORT INFORMATION
  Report Type: Spontaneous
  Country: US (occurrence: US)
  Receive Date: 20180802
  Receipt Date: 20181109
  Transmission Date: 20190204
  Serious: Yes (Other)
  Sender: FDA-Public Use
  Company Number: US-SHIRE-US201826538

PATIENT
  Sex: Male

DRUGS (5)
  1. PENTASA [Interacting]
     Active Substance: MESALAMINE
     Dosage: 500 MG, 2X/DAY:BID
     Route: 065
  2. PENTASA [Suspect]
     Active Substance: MESALAMINE
     Indication: CROHN^S DISEASE
     Dosage: 500 MG, 4X/DAY:QID
     Route: 065
     Dates: start: 201610
  3. PROTONIX [Interacting]
     Active Substance: PANTOPRAZOLE SODIUM
     Indication: PRODUCT USED FOR UNKNOWN INDICATION
     Dosage: UNK
     Route: 065
  4. PENTASA [Interacting]
     Active Substance: MESALAMINE
     Dosage: 500 MG, 3X/DAY:TID
     Route: 065
  5. CEFTIN [Concomitant]
     Active Substance: CEFUROXIME AXETIL
     Indication: SINUSITIS

REACTIONS (4)
  - Drug interaction [Unknown]
  - Sinusitis [Unknown]
  - Crohn^s disease [Unknown]
  - Product residue present [Unknown]
